FAERS Safety Report 14245328 (Version 10)
Quarter: 2020Q4

REPORT INFORMATION
  Report Type: Report from Study
  Country: FR (occurrence: FR)
  Receive Date: 20171202
  Receipt Date: 20201007
  Transmission Date: 20210113
  Serious: Yes (Death, Life-Threatening, Hospitalization, Other)
  Sender: FDA-Public Use
  Company Number: FR-AMGEN-FRANI2017063061

PATIENT
  Age: 57 Year
  Sex: Male
  Weight: 59 kg

DRUGS (107)
  1. CARFILZOMIB [Suspect]
     Active Substance: CARFILZOMIB
     Dosage: 45 MILLIGRAM/SQ. METER
     Route: 065
     Dates: start: 2017
  2. CARFILZOMIB [Suspect]
     Active Substance: CARFILZOMIB
     Dosage: 112 MILLIGRAM, ON DAYS 1, 2, 8, 9, 15 AND 16
     Route: 065
     Dates: start: 20170703
  3. AMLODIPINE [Concomitant]
     Active Substance: AMLODIPINE BESYLATE
     Indication: PRODUCT USED FOR UNKNOWN INDICATION
     Dosage: 5 MILLIGRAM, QD
     Route: 065
  4. DOLIPRANE [Concomitant]
     Active Substance: ACETAMINOPHEN
     Dosage: 3 GRAM, QD
     Route: 065
  5. ASPIRIN. [Concomitant]
     Active Substance: ASPIRIN
     Dosage: 1 G, X 2/DAY FOR 7 DAYS
     Dates: start: 2017
  6. BINOCRIT [Concomitant]
     Active Substance: ERYTHROPOIETIN
     Dosage: 1 DOSAGE FORM, QWK
     Route: 065
  7. BINOCRIT [Concomitant]
     Active Substance: ERYTHROPOIETIN
     Dosage: UNK
     Route: 065
  8. ZELITREX [Concomitant]
     Active Substance: VALACYCLOVIR HYDROCHLORIDE
     Indication: PRODUCT USED FOR UNKNOWN INDICATION
     Dosage: 500 MG, 1 DAY OUT OF 2 (EVEN DAYS)
     Route: 065
     Dates: start: 2017
  9. TAVANIC [Concomitant]
     Active Substance: LEVOFLOXACIN
     Dosage: 1000 MILLIGRAM
     Route: 065
  10. CARFILZOMIB [Suspect]
     Active Substance: CARFILZOMIB
     Indication: PLASMA CELL MYELOMA
     Dosage: 56 MILLIGRAM/SQ. METER
     Route: 065
     Dates: start: 20160907
  11. VELCADE [Suspect]
     Active Substance: BORTEZOMIB
     Indication: PLASMA CELL MYELOMA
     Dosage: UNK
     Route: 065
     Dates: start: 20170210, end: 2017
  12. REVLIMID [Suspect]
     Active Substance: LENALIDOMIDE
     Dosage: 5 MILLIGRAM
     Route: 065
     Dates: start: 20180608
  13. HYDROCORTISONE. [Concomitant]
     Active Substance: HYDROCORTISONE
     Dosage: 25 MILLIGRAM, Q6HR
     Route: 042
     Dates: start: 201707
  14. SODIUM HYDROGEN CARBONATE [Concomitant]
     Active Substance: SODIUM BICARBONATE
     Dosage: 1 GRAM, TID
  15. LOVENOX [Concomitant]
     Active Substance: ENOXAPARIN SODIUM
     Dosage: 0.2 OT, QD
     Route: 065
  16. LOVENOX [Concomitant]
     Active Substance: ENOXAPARIN SODIUM
     Dosage: UNK, QD
     Route: 065
  17. ASPIRIN. [Concomitant]
     Active Substance: ASPIRIN
     Dosage: DOSAGE FORM: UNSPECIFIED
     Route: 065
     Dates: start: 20170101, end: 20170120
  18. AMLOR [Concomitant]
     Active Substance: AMLODIPINE BESYLATE
     Dosage: 10 MILLIGRAM
     Route: 065
     Dates: start: 20170906
  19. APIDRA [Concomitant]
     Active Substance: INSULIN GLULISINE
     Dosage: 90 INTERNATIONAL UNIT
     Route: 058
  20. BICARBONATE [Concomitant]
     Active Substance: SODIUM BICARBONATE
     Dosage: 4 GRAM
  21. BICARBONATE [Concomitant]
     Active Substance: SODIUM BICARBONATE
     Dosage: 3 MILLIGRAM
  22. SODIUM BICARBONATE. [Concomitant]
     Active Substance: SODIUM BICARBONATE
     Dosage: 1 GRAM, TID
     Route: 065
  23. CARFILZOMIB [Suspect]
     Active Substance: CARFILZOMIB
     Dosage: 27 MILLIGRAM/SQ. METER
     Route: 065
     Dates: start: 2017
  24. REVLIMID [Suspect]
     Active Substance: LENALIDOMIDE
     Dosage: 15 MILLIGRAM
     Route: 065
     Dates: start: 20180411
  25. LANSOPRAZOLE. [Concomitant]
     Active Substance: LANSOPRAZOLE
     Dosage: 15 MILLIGRAM, QD
     Route: 065
  26. HYDROCORTISONE. [Concomitant]
     Active Substance: HYDROCORTISONE
     Dosage: 20 MILLIGRAM, QD
     Route: 065
  27. BINOCRIT [Concomitant]
     Active Substance: ERYTHROPOIETIN
     Dosage: UNK
     Route: 065
  28. FUROSEMIDE. [Concomitant]
     Active Substance: FUROSEMIDE
     Indication: PRODUCT USED FOR UNKNOWN INDICATION
     Dosage: 500 OT, 1/4 -0-0
     Route: 065
  29. ENDOXAN [Suspect]
     Active Substance: CYCLOPHOSPHAMIDE
     Indication: PLASMA CELL MYELOMA
     Dosage: UNK
     Route: 065
     Dates: start: 201707
  30. REVLIMID [Suspect]
     Active Substance: LENALIDOMIDE
     Indication: PLASMA CELL MYELOMA
     Dosage: 15 MILLIGRAM
     Route: 065
     Dates: start: 20180330
  31. REVLIMID [Suspect]
     Active Substance: LENALIDOMIDE
     Dosage: 15 MILLIGRAM
     Route: 065
     Dates: start: 20180514
  32. CYCLOPHOSPHAMIDE. [Suspect]
     Active Substance: CYCLOPHOSPHAMIDE
     Indication: PLASMA CELL MYELOMA
     Dosage: 250 MILLIGRAM (5 TABLETS) AT 12 PM AND 7 PM ON FRIDAY THEN 10 TABLETS
     Route: 065
  33. HYDROCORTISONE. [Concomitant]
     Active Substance: HYDROCORTISONE
     Dosage: UNK, QD
     Route: 042
     Dates: start: 20170101
  34. CODEINE PHOSPHATE [Concomitant]
     Active Substance: CODEINE PHOSPHATE
     Dosage: UNK
     Route: 065
  35. SODIUM HYDROGEN CARBONATE [Concomitant]
     Active Substance: SODIUM BICARBONATE
     Dosage: 3 GRAM, TID
  36. CODEINE PHOSPHATE;PARACETAMOL [Concomitant]
     Active Substance: ACETAMINOPHEN\CODEINE PHOSPHATE
     Indication: PRODUCT USED FOR UNKNOWN INDICATION
     Dosage: 2.5 MILLIGRAM, BID,  IN THE MORNING AND AT NIGHT
     Route: 065
  37. DOLIPRANE [Concomitant]
     Active Substance: ACETAMINOPHEN
     Dosage: 3 GRAM
     Route: 065
  38. BICARBONATE [Concomitant]
     Active Substance: SODIUM BICARBONATE
     Dosage: 1 MILLIGRAM, TID
  39. TAVANIC [Concomitant]
     Active Substance: LEVOFLOXACIN
     Dosage: 250 MILLIGRAM
     Route: 065
  40. CALCIDIA [Concomitant]
     Active Substance: CALCIUM CARBONATE
     Dosage: UNK, QD
     Route: 065
  41. GABAPENTIN. [Concomitant]
     Active Substance: GABAPENTIN
     Dosage: UNK
     Route: 065
  42. CARFILZOMIB [Suspect]
     Active Substance: CARFILZOMIB
     Dosage: 45 MILLIGRAM/SQ. METER
     Route: 065
     Dates: start: 20170101
  43. PANOBINOSTAT [Suspect]
     Active Substance: PANOBINOSTAT
     Indication: PLASMA CELL MYELOMA
     Dosage: UNK
     Route: 065
     Dates: start: 20170210, end: 2017
  44. PANOBINOSTAT [Suspect]
     Active Substance: PANOBINOSTAT
     Dosage: UNK
     Route: 065
  45. REVLIMID [Suspect]
     Active Substance: LENALIDOMIDE
     Dosage: 10 MILLIGRAM
     Route: 065
     Dates: start: 20180807, end: 20181227
  46. IXAZOMIB [Suspect]
     Active Substance: IXAZOMIB
     Dosage: 3 MILLIGRAM
     Route: 065
     Dates: start: 20170901
  47. IXAZOMIB [Suspect]
     Active Substance: IXAZOMIB
     Dosage: 3 MILLIGRAM, 1/WEEK
     Route: 065
  48. HYDROCORTISONE. [Concomitant]
     Active Substance: HYDROCORTISONE
     Dosage: 40 MG IN MORNING, 20 MG IN NOON
     Route: 065
  49. HYDROCORTISONE. [Concomitant]
     Active Substance: HYDROCORTISONE
     Dosage: 20 MILLIGRAM, BID (10 MG, 2-1-0)
     Route: 042
  50. HYDROCORTISONE. [Concomitant]
     Active Substance: HYDROCORTISONE
     Dosage: 25 MILLIGRAM
     Route: 065
  51. CODEINE PHOSPHATE [Concomitant]
     Active Substance: CODEINE PHOSPHATE
     Indication: PRODUCT USED FOR UNKNOWN INDICATION
     Dosage: 2.5 MILLIGRAM, QD
     Route: 065
  52. VALACICLOVIR [Concomitant]
     Active Substance: VALACYCLOVIR HYDROCHLORIDE
     Indication: PRODUCT USED FOR UNKNOWN INDICATION
     Dosage: 500 MILLIGRAM
     Route: 065
     Dates: start: 2017
  53. VALACICLOVIR [Concomitant]
     Active Substance: VALACYCLOVIR HYDROCHLORIDE
     Dosage: UNK
     Route: 065
  54. BINOCRIT [Concomitant]
     Active Substance: ERYTHROPOIETIN
     Indication: PRODUCT USED FOR UNKNOWN INDICATION
     Dosage: UNK
     Route: 065
  55. FUROSEMIDE. [Concomitant]
     Active Substance: FUROSEMIDE
     Dosage: UNK
     Route: 065
  56. APROVEL [Concomitant]
     Active Substance: IRBESARTAN
     Dosage: 75 MILLIGRAM, QD 1 TABLET IN THE MORNING
     Route: 065
  57. TAVANIC [Concomitant]
     Active Substance: LEVOFLOXACIN
     Indication: ANTIBIOTIC PROPHYLAXIS
     Dosage: 1000 MILLIGRAM
     Route: 065
     Dates: start: 20170823
  58. REVLIMID [Suspect]
     Active Substance: LENALIDOMIDE
     Dosage: 10 MILLIGRAM
     Route: 065
     Dates: start: 20180425
  59. IXAZOMIB [Suspect]
     Active Substance: IXAZOMIB
     Indication: PLASMA CELL MYELOMA
     Dosage: UNK
     Route: 065
     Dates: start: 20170701
  60. IXAZOMIB [Suspect]
     Active Substance: IXAZOMIB
     Dosage: 4 MILLIGRAM, 1/WEEK
     Route: 065
     Dates: start: 20180330, end: 20181227
  61. LANSOPRAZOLE. [Concomitant]
     Active Substance: LANSOPRAZOLE
     Indication: PRODUCT USED FOR UNKNOWN INDICATION
     Dosage: 15 MILLIGRAM
     Route: 065
  62. HYDROCORTISONE. [Concomitant]
     Active Substance: HYDROCORTISONE
     Indication: PRODUCT USED FOR UNKNOWN INDICATION
     Dosage: 10 MILLIGRAM
     Route: 042
  63. HYDROCORTISONE. [Concomitant]
     Active Substance: HYDROCORTISONE
     Dosage: 25 MILLIGRAM, Q6HR
     Route: 042
     Dates: start: 20170701
  64. CODEINE PHOSPHATE [Concomitant]
     Active Substance: CODEINE PHOSPHATE
     Dosage: UNK
     Route: 065
  65. SODIUM HYDROGEN CARBONATE [Concomitant]
     Active Substance: SODIUM BICARBONATE
     Dosage: 1 MILLIGRAM, QID
     Route: 065
  66. DOLIPRANE [Concomitant]
     Active Substance: ACETAMINOPHEN
     Indication: PRODUCT USED FOR UNKNOWN INDICATION
     Dosage: 1 G, 3/DAY IF IN PAIN
  67. AMLOR [Concomitant]
     Active Substance: AMLODIPINE BESYLATE
     Dosage: 5 MILLIGRAM
     Route: 065
  68. CEFTRIAXONE. [Concomitant]
     Active Substance: CEFTRIAXONE
     Indication: PRODUCT USED FOR UNKNOWN INDICATION
     Dosage: 2 GRAM, QD
     Route: 042
     Dates: start: 20170822, end: 20170822
  69. LANTUS [Concomitant]
     Active Substance: INSULIN GLARGINE
     Indication: PRODUCT USED FOR UNKNOWN INDICATION
     Dosage: 40 INTERNATIONAL UNIT, QD
     Route: 058
  70. BICARBONATE [Concomitant]
     Active Substance: SODIUM BICARBONATE
     Indication: PRODUCT USED FOR UNKNOWN INDICATION
     Dosage: 3 OT, TID
     Route: 065
  71. ORACILLINE [PHENOXYMETHYLPENICILLIN] [Concomitant]
     Active Substance: PENICILLIN V
     Indication: PRODUCT USED FOR UNKNOWN INDICATION
     Dosage: UNK
  72. SODIUM BICARBONATE. [Concomitant]
     Active Substance: SODIUM BICARBONATE
     Indication: PRODUCT USED FOR UNKNOWN INDICATION
     Dosage: 1 GRAM, TID
     Route: 065
  73. CARFILZOMIB [Suspect]
     Active Substance: CARFILZOMIB
     Dosage: 27 MILLIGRAM/SQ. METER
     Route: 065
     Dates: start: 20180319, end: 20190330
  74. CARFILZOMIB [Suspect]
     Active Substance: CARFILZOMIB
     Dosage: 112 MILLIGRAM/SQ. METER
     Route: 065
     Dates: start: 20170703
  75. ENDOXAN [Suspect]
     Active Substance: CYCLOPHOSPHAMIDE
     Dosage: 250 MG (5 TABLETS) AT 12 PM AND 7 PM ON FRIDAY THEN 10 TABLETS
     Route: 065
  76. REVLIMID [Suspect]
     Active Substance: LENALIDOMIDE
     Dosage: 10 MILLIEQUIVALENT
     Route: 065
  77. BORTEZOMIB. [Suspect]
     Active Substance: BORTEZOMIB
     Indication: PLASMA CELL MYELOMA
     Dosage: UNK
     Route: 065
     Dates: start: 20170210
  78. LANSOPRAZOLE. [Concomitant]
     Active Substance: LANSOPRAZOLE
     Dosage: 15 MILLIGRAM
     Route: 065
  79. HYDROCORTISONE. [Concomitant]
     Active Substance: HYDROCORTISONE
     Dosage: 20 MILLIGRAM, QD
     Route: 042
  80. HYDROCORTISONE. [Concomitant]
     Active Substance: HYDROCORTISONE
     Dosage: UNK UNK, BID
     Route: 065
     Dates: start: 2017
  81. HYDROCORTISONE. [Concomitant]
     Active Substance: HYDROCORTISONE
     Dosage: UNK
     Route: 042
  82. SODIUM HYDROGEN CARBONATE [Concomitant]
     Active Substance: SODIUM BICARBONATE
     Dosage: 4 GRAM, QD
     Route: 065
  83. VALACICLOVIR [Concomitant]
     Active Substance: VALACYCLOVIR HYDROCHLORIDE
     Dosage: UNK
     Route: 065
  84. APIDRA [Concomitant]
     Active Substance: INSULIN GLULISINE
     Indication: PRODUCT USED FOR UNKNOWN INDICATION
     Dosage: 90 INTERNATIONAL UNIT, QD
     Route: 058
  85. BINOCRIT [Concomitant]
     Active Substance: ERYTHROPOIETIN
     Dosage: 3000 OT
     Route: 065
  86. APROVEL [Concomitant]
     Active Substance: IRBESARTAN
     Indication: PRODUCT USED FOR UNKNOWN INDICATION
     Dosage: 75 MILLIGRAM
     Route: 065
  87. TAVANIC [Concomitant]
     Active Substance: LEVOFLOXACIN
     Dosage: 250 MILLIGRAM
     Route: 065
  88. TAVANIC [Concomitant]
     Active Substance: LEVOFLOXACIN
     Dosage: 500 MILLIGRAM
     Route: 065
  89. CALCIDIA [Concomitant]
     Active Substance: CALCIUM CARBONATE
     Indication: PRODUCT USED FOR UNKNOWN INDICATION
     Dosage: 1 DOSAGE FORM, QD (1-0-0)
     Route: 065
  90. SODIUM BICARBONATE. [Concomitant]
     Active Substance: SODIUM BICARBONATE
     Dosage: 1 GRAM, QID
     Route: 065
  91. DEXAMETHASONE. [Suspect]
     Active Substance: DEXAMETHASONE
     Indication: PLASMA CELL MYELOMA
     Dosage: UNK
     Route: 065
     Dates: start: 20170210
  92. DEXAMETHASONE. [Suspect]
     Active Substance: DEXAMETHASONE
     Dosage: 20 MILLIGRAM, QWK
     Route: 065
     Dates: start: 20180330, end: 20180425
  93. AMOXICILLIN. [Concomitant]
     Active Substance: AMOXICILLIN
     Indication: PRODUCT USED FOR UNKNOWN INDICATION
     Dosage: 500 MILLIGRAM, QD
     Route: 065
  94. AMLODIPINE [Concomitant]
     Active Substance: AMLODIPINE BESYLATE
     Dosage: 5 MILLIGRAM, QD
     Route: 065
  95. TOPALGIC [Concomitant]
     Indication: PAIN
     Dosage: 50 MG, X 4/DAY IF IN PAIN
  96. HYDROCORTISONE. [Concomitant]
     Active Substance: HYDROCORTISONE
     Dosage: UNK, BID
     Route: 042
     Dates: start: 20170101
  97. CODEINE PHOSPHATE [Concomitant]
     Active Substance: CODEINE PHOSPHATE
     Dosage: UNK
     Route: 065
  98. SODIUM HYDROGEN CARBONATE [Concomitant]
     Active Substance: SODIUM BICARBONATE
     Dosage: 3 GRAM, QD
     Route: 065
  99. ASPIRIN. [Concomitant]
     Active Substance: ASPIRIN
     Indication: PERICARDITIS
     Dosage: 1 G, TID
     Dates: start: 2017, end: 20170120
  100. ASPIRIN. [Concomitant]
     Active Substance: ASPIRIN
     Dosage: 1 G, X 1/DAY FOR 7 DAYS
     Dates: start: 2017, end: 2017
  101. AMLOR [Concomitant]
     Active Substance: AMLODIPINE BESYLATE
     Indication: PRODUCT USED FOR UNKNOWN INDICATION
     Dosage: 5 MILLIGRAM
     Route: 065
  102. ZELITREX [Concomitant]
     Active Substance: VALACYCLOVIR HYDROCHLORIDE
     Dosage: UNK
     Route: 065
  103. ZELITREX [Concomitant]
     Active Substance: VALACYCLOVIR HYDROCHLORIDE
     Dosage: UNK
     Route: 065
  104. ZELITREX [Concomitant]
     Active Substance: VALACYCLOVIR HYDROCHLORIDE
     Dosage: 500 MILLIGRAM
     Route: 065
     Dates: start: 20170101
  105. BICARBONATE [Concomitant]
     Active Substance: SODIUM BICARBONATE
     Dosage: 9 GRAM, TID
  106. GABAPENTIN. [Concomitant]
     Active Substance: GABAPENTIN
     Indication: PRODUCT USED FOR UNKNOWN INDICATION
     Dosage: UNK
  107. TRIATEC [RAMIPRIL] [Concomitant]
     Active Substance: RAMIPRIL
     Indication: PRODUCT USED FOR UNKNOWN INDICATION
     Dosage: 2.5 MILLIGRAM 1.25 MG, BID IN THE MORNING AND AT NIGHT

REACTIONS (24)
  - Pain in extremity [Unknown]
  - Cytopenia [Recovered/Resolved]
  - Spinal pain [Unknown]
  - Bronchial haemorrhage [Recovering/Resolving]
  - Septic shock [Unknown]
  - Pancytopenia [Recovering/Resolving]
  - Arthralgia [Unknown]
  - Morganella infection [Recovered/Resolved]
  - Thrombotic microangiopathy [Recovered/Resolved]
  - Dyspnoea exertional [Recovered/Resolved]
  - Respiratory distress [Recovered/Resolved]
  - Pleural effusion [Recovering/Resolving]
  - Diarrhoea [Recovering/Resolving]
  - Escherichia infection [Unknown]
  - Tremor [Recovered/Resolved]
  - Cough [Recovered/Resolved]
  - Plasma cell myeloma [Fatal]
  - Acute kidney injury [Unknown]
  - Pericarditis [Recovered/Resolved]
  - Oedema peripheral [Not Recovered/Not Resolved]
  - Klebsiella infection [Recovering/Resolving]
  - Haemoptysis [Recovering/Resolving]
  - Respiratory failure [Unknown]
  - Therapeutic response decreased [Unknown]

NARRATIVE: CASE EVENT DATE: 2016
